FAERS Safety Report 8348621-8 (Version None)
Quarter: 2012Q2

REPORT INFORMATION
  Report Type: 
  Country: None (occurrence: None)
  Receive Date: 20120510
  Receipt Date: 20110930
  Transmission Date: 20120825
  Serious: No
  Sender: FDA-Public Use
  Company Number: US-BIOGENIDEC-2011BI037592

PATIENT
  Age: 43 Year
  Sex: Female

DRUGS (1)
  1. AVONEX [Suspect]
     Indication: MULTIPLE SCLEROSIS
     Route: 030
     Dates: start: 20070217

REACTIONS (5)
  - MALAISE [None]
  - SCIATIC NERVE INJURY [None]
  - INFLUENZA LIKE ILLNESS [None]
  - VOMITING [None]
  - INJECTION SITE PAIN [None]
